FAERS Safety Report 6718502-1 (Version None)
Quarter: 2010Q2

REPORT INFORMATION
  Report Type: 
  Country: None (occurrence: None)
  Receive Date: 20100504
  Receipt Date: 20100427
  Transmission Date: 20101027
  Serious: Yes (Death)
  Sender: FDA-Public Use
  Company Number: 2010-0511

PATIENT
  Age: 78 Year
  Sex: Male

DRUGS (11)
  1. APOKYN [Suspect]
     Indication: PARKINSON'S DISEASE
     Dosage: 0.3 ML, AS REQUIRED 2 TO 3 TIMES PER DAY, PARENTERAL
     Route: 051
  2. AMANTADINE HCL [Concomitant]
  3. MEGACE [Concomitant]
  4. EXELON [Concomitant]
  5. NAMENDA [Concomitant]
  6. REQUIP [Concomitant]
  7. SINEMET CR [Concomitant]
  8. ZELAPAR (SELEGILINE HYDROCHLORIDE) [Concomitant]
  9. ARTHROTEC [Concomitant]
  10. SINEMET [Concomitant]
  11. FLOMAX (MORNIFLUMATE) [Concomitant]

REACTIONS (4)
  - DISEASE PROGRESSION [None]
  - FALL [None]
  - PARKINSON'S DISEASE [None]
  - WEIGHT DECREASED [None]
